FAERS Safety Report 6985239-3 (Version None)
Quarter: 2010Q3

REPORT INFORMATION
  Report Type: 
  Country: None (occurrence: None)
  Receive Date: 20100915
  Receipt Date: 20100910
  Transmission Date: 20110219
  Serious: Yes (Death, Life-Threatening, Other)
  Sender: FDA-Public Use
  Company Number: KR-CELGENEUS-286-C5013-10081456

PATIENT
  Sex: Female
  Weight: 49.2 kg

DRUGS (48)
  1. THALIDOMIDE [Suspect]
     Indication: MULTIPLE MYELOMA
     Route: 048
     Dates: start: 20100719, end: 20100811
  2. MELPHALAN HYDROCHLORIDE [Suspect]
     Indication: MULTIPLE MYELOMA
     Route: 065
     Dates: start: 20100719, end: 20100722
  3. PREDNISONE [Suspect]
     Indication: MULTIPLE MYELOMA
     Route: 065
     Dates: start: 20100719, end: 20100722
  4. PRIGEL [Concomitant]
     Indication: PROPHYLAXIS
     Route: 048
     Dates: start: 20100401, end: 20100709
  5. BEECOM [Concomitant]
     Route: 048
     Dates: start: 20100401, end: 20100709
  6. NORVASC [Concomitant]
     Indication: HYPERTENSION
     Route: 048
     Dates: start: 20100710, end: 20100714
  7. SODIUM BICARBONATE [Concomitant]
     Route: 051
     Dates: start: 20100709, end: 20100722
  8. POTASSIUM CHLORIDE [Concomitant]
     Dosage: 20 MEQ
     Route: 051
     Dates: start: 20100710, end: 20100722
  9. APETROL [Concomitant]
     Indication: DECREASED APPETITE
     Route: 048
     Dates: start: 20100726, end: 20100812
  10. ALBUMIN (HUMAN) [Concomitant]
     Dosage: 20%
     Route: 051
     Dates: start: 20100719, end: 20100719
  11. ALBUMIN (HUMAN) [Concomitant]
     Indication: PROPHYLAXIS
     Route: 051
     Dates: start: 20100810, end: 20100810
  12. SULFATE MORPHINE [Concomitant]
     Indication: PAIN MANAGEMENT
     Route: 051
     Dates: start: 20100710, end: 20100720
  13. TAZOCIN [Concomitant]
     Indication: PNEUMONIA
     Route: 051
     Dates: start: 20100712, end: 20100719
  14. CRAVIT [Concomitant]
     Indication: PNEUMONIA
     Route: 048
     Dates: start: 20100720, end: 20100722
  15. DENOGAN [Concomitant]
     Indication: PAIN MANAGEMENT
     Route: 051
     Dates: start: 20100712, end: 20100712
  16. ISEPACIN [Concomitant]
     Indication: PNEUMONIA
     Route: 048
     Dates: start: 20100712, end: 20100719
  17. LASIX [Concomitant]
     Route: 051
     Dates: start: 20100712, end: 20100712
  18. MOTILIUM M [Concomitant]
     Indication: PROPHYLAXIS
     Route: 051
     Dates: start: 20100802, end: 20100811
  19. SODIUM CHLORIDE [Concomitant]
     Dosage: 80 MEQ
     Route: 051
     Dates: start: 20100713, end: 20100716
  20. TRIDOL [Concomitant]
     Indication: PAIN MANAGEMENT
     Route: 048
     Dates: start: 20100720, end: 20100722
  21. SYLCON [Concomitant]
     Indication: CONSTIPATION
     Route: 048
     Dates: start: 20100710, end: 20100711
  22. PRIVITUSS [Concomitant]
     Indication: PNEUMONIA
     Route: 048
     Dates: start: 20100712, end: 20100722
  23. PROSTEN [Concomitant]
     Route: 051
     Dates: start: 20100719, end: 20100719
  24. ZYLORIC [Concomitant]
     Indication: ANTICOAGULANT THERAPY
     Route: 048
     Dates: start: 20100710, end: 20100801
  25. SEPTRIN [Concomitant]
     Indication: ANTIBIOTIC THERAPY
     Route: 048
     Dates: start: 20100720, end: 20100723
  26. OXYCONTIN [Concomitant]
     Indication: PAIN MANAGEMENT
     Route: 048
     Dates: start: 20100701, end: 20100720
  27. OXYCONTIN [Concomitant]
     Route: 048
     Dates: start: 20100720, end: 20100727
  28. OXYCONTIN [Concomitant]
     Route: 048
     Dates: start: 20100726, end: 20100811
  29. ZOVIRAX [Concomitant]
     Indication: PROPHYLAXIS
     Route: 061
     Dates: start: 20100717, end: 20100722
  30. PANTOMED [Concomitant]
     Indication: PROPHYLAXIS
     Route: 048
     Dates: start: 20100709, end: 20100811
  31. STILLEN [Concomitant]
     Indication: PROPHYLAXIS
     Route: 048
     Dates: start: 20100709, end: 20100811
  32. HYDROMORPHONE HCL [Concomitant]
     Indication: PAIN MANAGEMENT
     Route: 048
     Dates: start: 20100726, end: 20100808
  33. HYDROMORPHONE HCL [Concomitant]
     Route: 048
     Dates: start: 20100809, end: 20100811
  34. MOBTC [Concomitant]
     Indication: PAIN MANAGEMENT
     Route: 048
     Dates: start: 20100709, end: 20100812
  35. PROTECT ASPIRIN [Concomitant]
     Indication: ANTICOAGULANT THERAPY
     Route: 048
     Dates: start: 20100719, end: 20100811
  36. IR CODON [Concomitant]
     Indication: PAIN MANAGEMENT
     Route: 048
     Dates: start: 20100726, end: 20100812
  37. PENTRAMIN [Concomitant]
     Indication: ANTIBIOTIC THERAPY
     Route: 051
     Dates: start: 20100710, end: 20100710
  38. PANORT [Concomitant]
     Indication: OSTEOPOROSIS
     Route: 051
     Dates: start: 20100711, end: 20100809
  39. FENTANYL CITRATE [Concomitant]
     Indication: BACK PAIN
     Dosage: 25 MCG/H
     Route: 061
     Dates: start: 20100811, end: 20100812
  40. DICLOFENAC [Concomitant]
     Indication: BACK PAIN
     Route: 051
     Dates: start: 20100809, end: 20100809
  41. AMINO ACIDS [Concomitant]
     Route: 051
     Dates: start: 20100811, end: 20100811
  42. AMINO ACIDS [Concomitant]
     Indication: VOMITING
  43. AMINO ACIDS [Concomitant]
     Indication: NAUSEA
  44. MEGESTROL ACETATE [Concomitant]
     Indication: PROPHYLAXIS
     Route: 048
     Dates: start: 20100709, end: 20100811
  45. MELOXICAM [Concomitant]
     Indication: PAIN
     Route: 048
     Dates: start: 20100709, end: 20100811
  46. PAMIDRONATE DISODIUM [Concomitant]
     Indication: OSTEOPOROSIS
     Route: 051
     Dates: start: 20100809, end: 20100809
  47. HYDROMORPHONE HCL [Concomitant]
     Indication: PAIN
     Route: 048
     Dates: start: 20100726, end: 20100808
  48. HYDROMORPHONE HCL [Concomitant]
     Route: 048
     Dates: start: 20100809, end: 20100811

REACTIONS (4)
  - DYSPNOEA [None]
  - PNEUMONIA [None]
  - SEPSIS [None]
  - SHOCK [None]
